FAERS Safety Report 6860878-9 (Version None)
Quarter: 2010Q3

REPORT INFORMATION
  Report Type: 
  Country: None (occurrence: None)
  Receive Date: 20100719
  Receipt Date: 20100719
  Transmission Date: 20110219
  Serious: Yes (Other)
  Sender: FDA-Public Use
  Company Number: None

PATIENT
  Age: 70 Year
  Sex: Female
  Weight: 58.514 kg

DRUGS (1)
  1. XANAX [Suspect]
     Dates: start: 20100506, end: 20100710

REACTIONS (4)
  - ABNORMAL FAECES [None]
  - MIDDLE INSOMNIA [None]
  - PANIC ATTACK [None]
  - PRODUCT SUBSTITUTION ISSUE [None]
